FAERS Safety Report 10487671 (Version 1)
Quarter: 2014Q4

REPORT INFORMATION
  Report Type: Spontaneous
  Country: US (occurrence: US)
  Receive Date: 20141001
  Receipt Date: 20141001
  Transmission Date: 20150528
  Serious: Yes (Hospitalization)
  Sender: FDA-Public Use
  Company Number: US-PFIZER INC-2014267944

PATIENT
  Age: 67 Year
  Sex: Female
  Weight: 86.17 kg

DRUGS (3)
  1. LYRICA [Suspect]
     Active Substance: PREGABALIN
     Indication: FIBROMYALGIA
  2. LYRICA [Suspect]
     Active Substance: PREGABALIN
     Indication: NEUROPATHY PERIPHERAL
     Dosage: 500 MG, DAILY
  3. REMERON [Concomitant]
     Active Substance: MIRTAZAPINE
     Dosage: UNK

REACTIONS (2)
  - Blood sodium increased [Unknown]
  - Blood potassium decreased [Unknown]
